FAERS Safety Report 6728717-4 (Version None)
Quarter: 2010Q2

REPORT INFORMATION
  Report Type: 
  Country: None (occurrence: None)
  Receive Date: 20100517
  Receipt Date: 20100506
  Transmission Date: 20101027
  Serious: Yes (Hospitalization)
  Sender: FDA-Public Use
  Company Number: US-AMGEN-QUU387571

PATIENT
  Sex: Female

DRUGS (5)
  1. ENBREL [Suspect]
     Indication: RHEUMATOID ARTHRITIS
     Route: 058
     Dates: start: 19991001
  2. ALBUTEROL SULATE [Suspect]
  3. SYMBICORT [Concomitant]
  4. PRAVASTATIN [Concomitant]
  5. XALATAN [Concomitant]

REACTIONS (4)
  - BRONCHIAL HYPERREACTIVITY [None]
  - INJECTION SITE PAIN [None]
  - PNEUMONIA [None]
  - TRANSAMINASES INCREASED [None]
